FAERS Safety Report 7356741-X (Version None)
Quarter: 2011Q1

REPORT INFORMATION
  Report Type: 
  Country: None (occurrence: None)
  Receive Date: 20110316
  Receipt Date: 20110314
  Transmission Date: 20110831
  Serious: Yes (Hospitalization)
  Sender: FDA-Public Use
  Company Number: ES-ABBOTT-11P-144-0711056-00

PATIENT
  Age: 40 Year
  Sex: Male

DRUGS (3)
  1. KALETRA [Suspect]
     Indication: HIV INFECTION
     Dosage: 100/25 MG EVERY 12 HOURS
     Route: 048
     Dates: start: 20100923, end: 20101221
  2. DEPAKENE [Concomitant]
     Indication: PRODUCT USED FOR UNKNOWN INDICATION
     Dosage: DAILY DOSE: 2.4 GRAM
     Route: 048
     Dates: start: 20080601
  3. COMBIVIR [Suspect]
     Indication: HIV INFECTION
     Dosage: 150/300 MG EVERY 12 HOURS
     Route: 048
     Dates: start: 20100923, end: 20101221

REACTIONS (2)
  - BONE MARROW TOXICITY [None]
  - ANAEMIA [None]
